FAERS Safety Report 7532027-5 (Version None)
Quarter: 2011Q2

REPORT INFORMATION
  Report Type: 
  Country: None (occurrence: None)
  Receive Date: 20110608
  Receipt Date: 20110530
  Transmission Date: 20111010
  Serious: Yes (Other)
  Sender: FDA-Public Use
  Company Number: BR-MEDIMMUNE-MEDI-0013265

PATIENT
  Sex: Female
  Weight: 3.02 kg

DRUGS (2)
  1. SYNAGIS [Suspect]
     Indication: BRONCHOPULMONARY DYSPLASIA
  2. SYNAGIS [Suspect]

REACTIONS (6)
  - SNEEZING [None]
  - BRONCHIOLITIS [None]
  - INCREASED BRONCHIAL SECRETION [None]
  - FATIGUE [None]
  - RESPIRATORY ARREST [None]
  - RHINORRHOEA [None]
